FAERS Safety Report 15889044 (Version 1)
Quarter: 2019Q1

REPORT INFORMATION
  Report Type: Spontaneous
  Country: KR (occurrence: KR)
  Receive Date: 20190130
  Receipt Date: 20190130
  Transmission Date: 20190417
  Serious: Yes (Hospitalization, Other)
  Sender: FDA-Public Use
  Company Number: KR-TAKEDA-2019TUS003402

PATIENT
  Age: 34 Year
  Sex: Male

DRUGS (1)
  1. KYNTELES [Suspect]
     Active Substance: VEDOLIZUMAB
     Indication: CROHN^S DISEASE
     Dosage: UNK
     Route: 042
     Dates: start: 20171027, end: 20180130

REACTIONS (1)
  - Intestinal perforation [Recovered/Resolved]
